FAERS Safety Report 12647927 (Version 2)
Quarter: 2017Q4

REPORT INFORMATION
  Report Type: Spontaneous
  Country: IT (occurrence: IT)
  Receive Date: 20160812
  Receipt Date: 20171205
  Transmission Date: 20180320
  Serious: Yes (Life-Threatening, Hospitalization, Other)
  Sender: FDA-Public Use
  Company Number: IT-BAYER-2016-151686

PATIENT
  Age: 67 Year
  Sex: Male

DRUGS (6)
  1. CLOPIDOGREL [Interacting]
     Active Substance: CLOPIDOGREL BISULFATE
     Indication: ANTICOAGULANT THERAPY
     Dosage: UNK
     Dates: start: 20141201, end: 20150401
  2. TICAGRELOR. [Interacting]
     Active Substance: TICAGRELOR
     Indication: ANTICOAGULANT THERAPY
     Dosage: 180 MG, ONCE, LOADING DOSE
  3. WARFARIN [Interacting]
     Active Substance: WARFARIN
     Indication: ANTICOAGULANT THERAPY
  4. TICAGRELOR. [Interacting]
     Active Substance: TICAGRELOR
     Indication: ANTICOAGULANT THERAPY
     Dosage: 90 MG, BID
  5. DIPYRIDAMOLE. [Concomitant]
     Active Substance: DIPYRIDAMOLE
     Indication: ANTICOAGULANT THERAPY
     Dosage: 800 QD
  6. ACETYLSALICYLIC ACID (} 100 MG) [Suspect]
     Active Substance: ASPIRIN
     Indication: ANTICOAGULANT THERAPY
     Dosage: 100 QD

REACTIONS (8)
  - Haemorrhage intracranial [None]
  - Therapeutic response decreased [Unknown]
  - Labelled drug-drug interaction medication error [None]
  - Drug administration error [None]
  - Haematuria [None]
  - Embolic stroke [None]
  - Cardiac ventricular thrombosis [None]
  - Headache [Unknown]
